FAERS Safety Report 5333438-9 (Version None)
Quarter: 2007Q2

REPORT INFORMATION
  Report Type: 
  Country: None (occurrence: None)
  Receive Date: 20070521
  Receipt Date: 20070504
  Transmission Date: 20071010
  Serious: Yes (Hospitalization)
  Sender: FDA-Public Use
  Company Number: 2007NI0043

PATIENT
  Age: 48 Year
  Sex: Male
  Weight: 90.7194 kg

DRUGS (6)
  1. NITROLINGUAL PUMPSPRAY [Suspect]
     Indication: ANGINA PECTORIS
     Dosage: 1 SPRAY, Q 5 MINUTES PRN, SUB LINGUAL
     Route: 060
     Dates: start: 20060601
  2. ATENOLOL [Concomitant]
  3. SIMVASTATIN [Concomitant]
  4. HYDROCODONE BITARTRATE AND ASPIRIN [Concomitant]
  5. RHEUMATOID ARTHRITIS MEDICATION (NOS) [Concomitant]
  6. .. [Concomitant]

REACTIONS (7)
  - ASTHENIA [None]
  - CEREBROVASCULAR ACCIDENT [None]
  - DRUG INEFFECTIVE [None]
  - FACIAL PALSY [None]
  - HEADACHE [None]
  - MYOCARDIAL INFARCTION [None]
  - TONGUE PARALYSIS [None]
